FAERS Safety Report 14959241 (Version 1)
Quarter: 2018Q2

REPORT INFORMATION
  Report Type: Spontaneous
  Country: DE (occurrence: DE)
  Receive Date: 20180531
  Receipt Date: 20180531
  Transmission Date: 20180711
  Serious: Yes (Other)
  Sender: FDA-Public Use
  Company Number: DE-LPDUSPRD-20180929

PATIENT
  Age: 49 Year
  Sex: Female

DRUGS (1)
  1. VENOFER [Suspect]
     Active Substance: IRON SUCROSE
     Dosage: FIRST INFUSION
     Route: 041
     Dates: start: 20180222

REACTIONS (8)
  - Heart rate increased [Recovered/Resolved]
  - Musculoskeletal discomfort [Recovered/Resolved]
  - Tachycardia [Recovered/Resolved]
  - Limb injury [Recovered/Resolved]
  - Insomnia [Recovered/Resolved]
  - Nervous system disorder [Unknown]
  - Chest discomfort [Recovered/Resolved]
  - Pain in extremity [Recovered/Resolved]

NARRATIVE: CASE EVENT DATE: 201802
